FAERS Safety Report 5631513-2 (Version None)
Quarter: 2008Q1

REPORT INFORMATION
  Report Type: 
  Country: None (occurrence: None)
  Receive Date: 20080215
  Receipt Date: 20080201
  Transmission Date: 20080703
  Serious: Yes (Death)
  Sender: FDA-Public Use
  Company Number: 2008SP000159

PATIENT
  Age: 82 Year
  Sex: Female

DRUGS (3)
  1. BROVANA [Suspect]
     Dosage: INHALATION
     Route: 055
  2. XOPENEX [Suspect]
     Dosage: ;Q4H;INHALATION
     Route: 055
  3. CORTICOSTEROIDS [Concomitant]

REACTIONS (1)
  - DEATH [None]
